FAERS Safety Report 5947368-2 (Version None)
Quarter: 2008Q4

REPORT INFORMATION
  Report Type: 
  Country: None (occurrence: None)
  Receive Date: 20081106
  Receipt Date: 20081029
  Transmission Date: 20090506
  Serious: Yes (Death, Life-Threatening)
  Sender: FDA-Public Use
  Company Number: 2008US002999

PATIENT
  Age: 59 Year
  Sex: Male
  Weight: 82.5 kg

DRUGS (12)
  1. PROGRAF [Suspect]
     Indication: LUNG TRANSPLANT
     Dosage: 1 MG, BID, ORAL
     Route: 048
     Dates: start: 20041103, end: 20071115
  2. PREDNISOLONE ACETATE [Concomitant]
  3. CELLCEPT [Concomitant]
  4. VALACICLOVIR HYDROCHLORIDE (VALACICLOVIR HYDROCHLORIDE) [Concomitant]
  5. OMEPRAZOLE (OMEPRAZOLE SODIUM) [Concomitant]
  6. METOPROLOL TARTRATE [Concomitant]
  7. MULTIVITAMIN (ASCORBIC ACID) CAPSULE [Concomitant]
  8. MAGNESIUM OXIDE (MAGNESIUM OXIDE) [Concomitant]
  9. OSCAL [Concomitant]
  10. AZITHROMYCIN [Concomitant]
  11. METFORMIN HCL (METFORMIN HYDROCHLORIDE) [Concomitant]
  12. XALATAN [Concomitant]

REACTIONS (9)
  - ANAPHYLACTIC REACTION [None]
  - DECREASED APPETITE [None]
  - FATIGUE [None]
  - HERPES SIMPLEX [None]
  - METASTASES TO LIVER [None]
  - PANCREATIC CARCINOMA [None]
  - PHARYNGEAL OEDEMA [None]
  - RENAL CYST [None]
  - WEIGHT DECREASED [None]
